FAERS Safety Report 17551431 (Version 1)
Quarter: 2020Q1

REPORT INFORMATION
  Report Type: Spontaneous
  Country: FR (occurrence: FR)
  Receive Date: 20200317
  Receipt Date: 20200317
  Transmission Date: 20200409
  Serious: Yes (Other)
  Sender: FDA-Public Use
  Company Number: NVSC2020FR071754

PATIENT
  Age: 64 Year
  Sex: Female
  Weight: 54.5 kg

DRUGS (5)
  1. DEPAMIDE [Concomitant]
     Active Substance: VALPROMIDE
     Indication: PSYCHOTIC DISORDER
     Dosage: 3 DF, QD
     Route: 048
     Dates: end: 201908
  2. DEPAKOTE [Concomitant]
     Active Substance: DIVALPROEX SODIUM
     Indication: PSYCHOTIC DISORDER
     Dosage: UNK
     Route: 048
     Dates: start: 201909
  3. TERCIAN [Concomitant]
     Active Substance: CYAMEMAZINE
     Indication: PSYCHOTIC DISORDER
     Dosage: 1.5 DF, QD
     Route: 048
  4. TEGRETOL [Suspect]
     Active Substance: CARBAMAZEPINE
     Indication: PRODUCT SUPPLY ISSUE
     Dosage: UNK
     Route: 048
     Dates: start: 201908, end: 201909
  5. ZYPREXA [Concomitant]
     Active Substance: OLANZAPINE
     Indication: ANXIETY
     Dosage: 1 DF, QD
     Route: 048

REACTIONS (3)
  - Fall [Recovered/Resolved]
  - Product supply issue [Recovered/Resolved]
  - Vertigo [Recovered/Resolved]

NARRATIVE: CASE EVENT DATE: 201908
